FAERS Safety Report 4514703-1 (Version None)
Quarter: 2004Q4

REPORT INFORMATION
  Report Type: 
  Country: None (occurrence: None)
  Receive Date: 20041126
  Receipt Date: 20041110
  Transmission Date: 20050328
  Serious: Yes (Hospitalization)
  Sender: FDA-Public Use
  Company Number: 2004AP05750

PATIENT
  Age: 16 Year
  Sex: Female

DRUGS (3)
  1. OMEPRAZOLE [Suspect]
     Indication: OESOPHAGEAL DISORDER
     Dosage: 40 MG DAILY PO
     Route: 048
     Dates: start: 20040725, end: 20040831
  2. LUVOX [Suspect]
     Indication: DEPRESSION
     Dosage: 100 MG DAILY PO
     Route: 048
     Dates: end: 20040831
  3. MARVELON [Concomitant]

REACTIONS (2)
  - HYPOKALAEMIA [None]
  - SUICIDAL IDEATION [None]
